FAERS Safety Report 12282733 (Version 1)
Quarter: 2016Q2

REPORT INFORMATION
  Report Type: Spontaneous
  Country: GH (occurrence: GH)
  Receive Date: 20160419
  Receipt Date: 20160419
  Transmission Date: 20160815
  Serious: Yes (Death)
  Sender: FDA-Public Use
  Company Number: GH-ASTRAZENECA-2016SE41262

PATIENT
  Sex: Female

DRUGS (1)
  1. MERONEM [Suspect]
     Active Substance: MEROPENEM
     Indication: INFECTION
     Route: 042

REACTIONS (1)
  - Death [Fatal]
